FAERS Safety Report 8997645 (Version 2)
Quarter: 2013Q1

REPORT INFORMATION
  Report Type: Report from Study
  Country: IE (occurrence: IE)
  Receive Date: 20130104
  Receipt Date: 20130107
  Transmission Date: 20140127
  Serious: Yes (Hospitalization)
  Sender: FDA-Public Use
  Company Number: IE-ROCHE-1174985

PATIENT
  Age: 71 Year
  Sex: Male
  Weight: 89.4 kg

DRUGS (1)
  1. VEMURAFENIB [Suspect]
     Indication: MALIGNANT MELANOMA
     Dosage: LAST DOSE PRIOR TO SAE: 24/DEC/2012
     Route: 048
     Dates: start: 20120709, end: 20121224

REACTIONS (2)
  - Atrial flutter [Not Recovered/Not Resolved]
  - Confusional state [Not Recovered/Not Resolved]
